FAERS Safety Report 4301601-1 (Version None)
Quarter: 2004Q1

REPORT INFORMATION
  Report Type: 
  Country: None (occurrence: None)
  Receive Date: 20040219
  Receipt Date: 20040209
  Transmission Date: 20041129
  Serious: Yes (Hospitalization, Disabling)
  Sender: FDA-Public Use
  Company Number: HQ3307917JUL2002

PATIENT
  Age: 34 Year
  Sex: Female

DRUGS (1)
  1. EFFEXOR XR [Suspect]
     Dosage: 75 MG 1X PER 1 DAY ORAL; SEE IMAGE
     Route: 048
     Dates: start: 20011201

REACTIONS (8)
  - DIARRHOEA [None]
  - DRUG TOXICITY [None]
  - FATIGUE [None]
  - FOCAL NODULAR HYPERPLASIA [None]
  - HEPATIC CIRRHOSIS [None]
  - HEPATITIS [None]
  - SINUS BRADYCARDIA [None]
  - THROMBOSIS [None]
